FAERS Safety Report 25317200 (Version 1)
Quarter: 2025Q2

REPORT INFORMATION
  Report Type: Spontaneous
  Country: GB (occurrence: GB)
  Receive Date: 20250515
  Receipt Date: 20250515
  Transmission Date: 20250717
  Serious: Yes (Other)
  Sender: TEVA
  Company Number: GB-MHRA-TPP4860554C24023175YC1746535595575

PATIENT
  Age: 88 Year
  Sex: Female
  Weight: 41 kg

DRUGS (13)
  1. TRIMETHOPRIM [Suspect]
     Active Substance: TRIMETHOPRIM
     Indication: Ill-defined disorder
     Dosage: DAILY DOSE: 200 MG DAILY, DURATION: 4 DAYS
     Route: 048
     Dates: start: 20250502, end: 20250505
  2. FERROUS FUMARATE [Concomitant]
     Active Substance: FERROUS FUMARATE
     Indication: Ill-defined disorder
     Route: 048
     Dates: start: 20240817, end: 20250404
  3. CANDESARTAN [Concomitant]
     Active Substance: CANDESARTAN
     Indication: Ill-defined disorder
     Dosage: DAILY DOSE : 1 DOSAGE FORM DAILY
     Route: 048
     Dates: start: 20240521
  4. LANSOPRAZOLE [Concomitant]
     Active Substance: LANSOPRAZOLE
     Indication: Ill-defined disorder
     Route: 048
     Dates: start: 20240521
  5. SENNA [Concomitant]
     Active Substance: SENNOSIDES
     Indication: Ill-defined disorder
     Route: 048
     Dates: start: 20241218
  6. DIGOXIN [Concomitant]
     Active Substance: DIGOXIN
     Indication: Ill-defined disorder
     Route: 048
     Dates: start: 20240902
  7. SPIRONOLACTONE [Concomitant]
     Active Substance: SPIRONOLACTONE
     Indication: Ill-defined disorder
     Dosage: EVERY MORNING AS DIRECTED, DAILY DOSE: 1 DOSAGE FORM DAILY
     Route: 048
     Dates: start: 20241218
  8. EDOXABAN [Concomitant]
     Active Substance: EDOXABAN
     Indication: Ill-defined disorder
     Route: 048
     Dates: start: 20240521
  9. LEVOTHYROXINE [Concomitant]
     Active Substance: LEVOTHYROXINE
     Indication: Ill-defined disorder
     Dosage: EACH MORNING, DAILY DOSE: 1 DOSAGE FORM DAILY
     Route: 048
     Dates: start: 20240521
  10. FUROSEMIDE [Concomitant]
     Active Substance: FUROSEMIDE
     Indication: Ill-defined disorder
     Dosage: EACH MORNING, DAILY DOSE: 1 DOSAGE FORM DAILY, DURATION: 114 DAYS
     Route: 048
     Dates: start: 20250106, end: 20250429
  11. BISOPROLOL [Concomitant]
     Active Substance: BISOPROLOL
     Indication: Ill-defined disorder
     Dosage: DAILY DOSE: 1 DOSAGE FORM DAILY
     Route: 048
     Dates: start: 20240805
  12. ACETAMINOPHEN\CODEINE PHOSPHATE [Concomitant]
     Active Substance: ACETAMINOPHEN\CODEINE PHOSPHATE
     Indication: Pain
     Route: 048
     Dates: start: 20240930
  13. CYANOCOBALAMIN [Concomitant]
     Active Substance: CYANOCOBALAMIN
     Indication: Ill-defined disorder
     Dosage: DAILY DOSE : 1 DOSAGE FORM DAILY
     Route: 065
     Dates: start: 20250402

REACTIONS (1)
  - Dyskinesia [Recovered/Resolved]

NARRATIVE: CASE EVENT DATE: 20250506
